FAERS Safety Report 5876489-8 (Version None)
Quarter: 2008Q3

REPORT INFORMATION
  Report Type: 
  Country: None (occurrence: None)
  Receive Date: 20080910
  Receipt Date: 20080904
  Transmission Date: 20090109
  Serious: Yes (Other)
  Sender: FDA-Public Use
  Company Number: A0746656A

PATIENT
  Age: 44 Year
  Sex: Female
  Weight: 101.4 kg

DRUGS (10)
  1. AVANDIA [Suspect]
     Indication: TYPE 2 DIABETES MELLITUS
     Dosage: 2MG PER DAY
     Route: 048
     Dates: start: 19990101, end: 20070101
  2. ZOLOFT [Concomitant]
  3. PROZAC [Concomitant]
  4. METOPROLOL SUCCINATE [Concomitant]
  5. ATENOLOL [Concomitant]
  6. METFORMIN [Concomitant]
  7. ZOCOR [Concomitant]
  8. HUMALOG [Concomitant]
  9. HYDROCHLOROTHIAZIDE [Concomitant]
  10. VIOXX [Concomitant]

REACTIONS (13)
  - ABASIA [None]
  - AMNESIA [None]
  - ANXIETY [None]
  - ARRHYTHMIA [None]
  - ASTHENIA [None]
  - CARDIAC HYPERTROPHY [None]
  - CEREBROVASCULAR ACCIDENT [None]
  - CORONARY ARTERY DISEASE [None]
  - DEPRESSED MOOD [None]
  - DEPRESSION [None]
  - DYSPNOEA [None]
  - HYPERTENSION [None]
  - MYOCARDIAL INFARCTION [None]
